FAERS Safety Report 9254221 (Version 2)
Quarter: 2013Q2

REPORT INFORMATION
  Report Type: Report from Study
  Country: JP (occurrence: JP)
  Receive Date: 20130425
  Receipt Date: 20130429
  Transmission Date: 20140414
  Serious: Yes (Hospitalization)
  Sender: FDA-Public Use
  Company Number: PHHY2013JP039103

PATIENT
  Age: 41 Year
  Sex: Male

DRUGS (1)
  1. LEPONEX / CLOZARIL [Suspect]
     Indication: SCHIZOPHRENIA
     Dosage: UNK
     Route: 048
     Dates: start: 20120831

REACTIONS (5)
  - Appendicitis [Unknown]
  - Abdominal pain [Unknown]
  - Decreased appetite [Unknown]
  - Peritonitis [Unknown]
  - Acute abdomen [Unknown]
